FAERS Safety Report 8375737-2 (Version None)
Quarter: 2012Q2

REPORT INFORMATION
  Report Type: 
  Country: None (occurrence: None)
  Receive Date: 20120522
  Receipt Date: 20120514
  Transmission Date: 20120825
  Serious: Yes (Other)
  Sender: FDA-Public Use
  Company Number: IN-ACCORD-013536

PATIENT
  Age: 25 Year
  Sex: Female

DRUGS (1)
  1. TOPIRAMATE [Suspect]

REACTIONS (3)
  - OFF LABEL USE [None]
  - MACULOPATHY [None]
  - ANGLE CLOSURE GLAUCOMA [None]
